FAERS Safety Report 8808911 (Version 1)
Quarter: 2012Q4

REPORT INFORMATION
  Report Type: 
  Country: US (occurrence: US)
  Receive Date: 20120926
  Receipt Date: 20120926
  Transmission Date: 20130627
  Serious: Yes (Other)
  Sender: FDA-Public Use
  Company Number: US-SANOFI-AVENTIS-2012SA057764

PATIENT
  Sex: Female

DRUGS (1)
  1. ALLEGRA [Suspect]
     Route: 048

REACTIONS (4)
  - Sinus operation [Unknown]
  - Dystonia [Not Recovered/Not Resolved]
  - Dry eye [Unknown]
  - Therapeutic response increased [Unknown]
